FAERS Safety Report 18231077 (Version 2)
Quarter: 2021Q1

REPORT INFORMATION
  Report Type: Spontaneous
  Country: US (occurrence: US)
  Receive Date: 20200904
  Receipt Date: 20210311
  Transmission Date: 20210419
  Serious: Yes (Other)
  Sender: FDA-Public Use
  Company Number: US-SA-2020SA238582

PATIENT
  Age: 81 Year

DRUGS (1)
  1. ZANTAC [Suspect]
     Active Substance: RANITIDINE HYDROCHLORIDE
     Dosage: UNK
     Dates: start: 201401, end: 201801

REACTIONS (2)
  - Renal cancer [Unknown]
  - Colorectal cancer [Unknown]

NARRATIVE: CASE EVENT DATE: 201711
